FAERS Safety Report 7903019-9 (Version None)
Quarter: 2011Q4

REPORT INFORMATION
  Report Type: 
  Country: None (occurrence: None)
  Receive Date: 20111109
  Receipt Date: 20111102
  Transmission Date: 20120403
  Serious: Yes (Death, Life-Threatening, Hospitalization)
  Sender: FDA-Public Use
  Company Number: JP-GENZYME-THYM-1001899

PATIENT
  Age: 73 Year
  Sex: Female
  Weight: 58 kg

DRUGS (23)
  1. FLUDARA [Concomitant]
     Indication: BONE MARROW CONDITIONING REGIMEN
     Dosage: UNK
     Route: 065
     Dates: start: 20100607, end: 20100611
  2. NORMAL-SERUM-ALBUMIN (HUMAN) [Concomitant]
     Indication: EMERGENCY CARE
     Dosage: UNK
     Route: 065
     Dates: start: 20100622, end: 20100622
  3. METHYLPREDNISOLONE SODIUM SUCCINATE [Concomitant]
     Indication: PREMEDICATION
     Dosage: UNK
     Route: 065
     Dates: start: 20100609, end: 20100611
  4. URSODIOL [Concomitant]
     Indication: PROPHYLAXIS
     Dosage: UNK
     Route: 065
     Dates: start: 20100611, end: 20100621
  5. SODIUM BICARBONATE [Concomitant]
     Indication: EMERGENCY CARE
     Dosage: UNK
     Route: 065
     Dates: start: 20100622, end: 20100622
  6. MEROPENEM [Concomitant]
     Indication: EMERGENCY CARE
     Dosage: UNK
     Route: 065
     Dates: start: 20100622, end: 20100622
  7. BUSULFAN [Concomitant]
     Indication: BONE MARROW CONDITIONING REGIMEN
     Dosage: UNK
     Route: 065
     Dates: start: 20100607, end: 20100608
  8. METHOTREXATE [Concomitant]
     Indication: PROPHYLAXIS AGAINST GRAFT VERSUS HOST DISEASE
     Dosage: UNK
     Route: 065
     Dates: start: 20100615, end: 20100617
  9. IMMUNOGLOBULIN HUMAN NORMAL [Concomitant]
     Indication: INFECTION PROPHYLAXIS
     Dosage: UNK
     Route: 065
     Dates: start: 20100615, end: 20100615
  10. POLYMYXIN B SULFATE [Concomitant]
     Indication: INFECTION PROPHYLAXIS
     Dosage: UNK
     Route: 065
     Dates: start: 20100506, end: 20100621
  11. NEUPOGEN [Concomitant]
     Indication: COLONY STIMULATING FACTOR THERAPY
     Dosage: UNK
     Route: 065
     Dates: start: 20100615, end: 20100622
  12. DEXCHLORPHENIRAMINE MALEATE [Concomitant]
     Indication: PREMEDICATION
     Dosage: UNK
     Route: 065
     Dates: start: 20100609, end: 20100611
  13. DOPAMINE HYDROCHLORIDE [Concomitant]
     Indication: EMERGENCY CARE
     Dosage: UNK
     Route: 065
     Dates: start: 20100622, end: 20100622
  14. THYMOGLOBULIN [Suspect]
     Indication: BONE MARROW CONDITIONING REGIMEN
     Dosage: 150 MG, QD
     Route: 042
     Dates: start: 20100609, end: 20100611
  15. NOREPINEPHRINE BITARTRATE [Concomitant]
     Indication: EMERGENCY CARE
     Dosage: UNK
     Route: 065
     Dates: start: 20100622, end: 20100622
  16. LACTATED RINGER'S [Concomitant]
     Indication: EMERGENCY CARE
     Dosage: UNK
     Route: 065
     Dates: start: 20100622, end: 20100622
  17. OMEPRAZOLE [Concomitant]
     Indication: EMERGENCY CARE
     Dosage: UNK
     Route: 065
     Dates: start: 20100622, end: 20100622
  18. PLATELETS [Concomitant]
     Indication: ACUTE MYELOID LEUKAEMIA
     Dosage: UNK
     Route: 065
     Dates: start: 20100503, end: 20100621
  19. RED BLOOD CELLS, CONCENTRATED [Concomitant]
     Indication: ACUTE MYELOID LEUKAEMIA
     Dosage: UNK
     Route: 065
     Dates: start: 20100522, end: 20100620
  20. DANAPAROID SODIUM [Concomitant]
     Indication: EMERGENCY CARE
     Dosage: UNK
     Route: 065
     Dates: start: 20100622, end: 20100622
  21. CYCLOSPORINE [Concomitant]
     Indication: PROPHYLAXIS AGAINST GRAFT VERSUS HOST DISEASE
     Dosage: UNK
     Route: 065
     Dates: start: 20100613, end: 20100621
  22. ACYCLOVIR [Concomitant]
     Indication: INFECTION PROPHYLAXIS
     Dosage: UNK
     Route: 065
     Dates: start: 20100611, end: 20100621
  23. VASOPRESSIN [Concomitant]
     Indication: EMERGENCY CARE
     Dosage: UNK
     Route: 065
     Dates: start: 20100622, end: 20100622

REACTIONS (5)
  - CLOSTRIDIUM DIFFICILE COLITIS [None]
  - SEPSIS [None]
  - PYREXIA [None]
  - ACUTE MYELOID LEUKAEMIA [None]
  - URINARY TRACT INFECTION PSEUDOMONAL [None]
